FAERS Safety Report 25760082 (Version 1)
Quarter: 2025Q3

REPORT INFORMATION
  Report Type: Spontaneous
  Country: US (occurrence: US)
  Receive Date: 20250904
  Receipt Date: 20250904
  Transmission Date: 20251021
  Serious: No
  Sender: CHIESI
  Company Number: US-CHIESI-2024CHF07139

PATIENT
  Sex: Female
  Weight: 48 kg

DRUGS (14)
  1. FERRIPROX [Suspect]
     Active Substance: DEFERIPRONE
     Indication: Haemochromatosis
     Dosage: UNK, BID
     Route: 048
  2. FERRIPROX [Suspect]
     Active Substance: DEFERIPRONE
     Indication: Red blood cell transfusion
  3. FERRIPROX [Suspect]
     Active Substance: DEFERIPRONE
     Indication: Thalassaemia
  4. DESFERAL [Suspect]
     Active Substance: DEFEROXAMINE MESYLATE
     Indication: Haemochromatosis
     Route: 065
  5. DESFERAL [Suspect]
     Active Substance: DEFEROXAMINE MESYLATE
     Indication: Red blood cell transfusion
  6. DESFERAL [Suspect]
     Active Substance: DEFEROXAMINE MESYLATE
     Indication: Thalassaemia
  7. CALCIUM [Concomitant]
     Active Substance: CALCIUM
     Indication: Product used for unknown indication
  8. FOLIC ACID [Concomitant]
     Active Substance: FOLIC ACID
     Indication: Product used for unknown indication
  9. ZINC [Concomitant]
     Active Substance: ZINC
     Indication: Product used for unknown indication
  10. LANSOPRAZOLE [Concomitant]
     Active Substance: LANSOPRAZOLE
     Indication: Product used for unknown indication
  11. PENICILLIN V POTASSIUM [Concomitant]
     Active Substance: PENICILLIN V POTASSIUM
     Indication: Product used for unknown indication
  12. SPIRONOLACTONE [Concomitant]
     Active Substance: SPIRONOLACTONE
     Indication: Product used for unknown indication
  13. VITAMIN C [Concomitant]
     Active Substance: ASCORBIC ACID
     Indication: Product used for unknown indication
  14. VITAMIN D [Concomitant]
     Active Substance: VITAMIN D NOS
     Indication: Product used for unknown indication

REACTIONS (3)
  - Liver iron concentration increased [Not Recovered/Not Resolved]
  - Fatigue [Not Recovered/Not Resolved]
  - Therapeutic product effect incomplete [Not Recovered/Not Resolved]
